FAERS Safety Report 21570172 (Version 1)
Quarter: 2022Q4

REPORT INFORMATION
  Report Type: Report from Study
  Country: DK (occurrence: DK)
  Receive Date: 20221109
  Receipt Date: 20221109
  Transmission Date: 20230112
  Serious: Yes (Hospitalization, Other)
  Sender: FDA-Public Use
  Company Number: DK-CELLTRION INC.-2022DK018492

PATIENT

DRUGS (14)
  1. RITUXIMAB [Suspect]
     Active Substance: RITUXIMAB
     Indication: Follicular lymphoma stage IV
     Dosage: 375 MG/M2, 1/WEEK
     Route: 058
     Dates: start: 20211228
  2. EPCORITAMAB [Suspect]
     Active Substance: EPCORITAMAB
     Indication: Follicular lymphoma stage IV
     Dosage: 48 MG, 1/WEEK, FULL DOSE
     Route: 042
     Dates: start: 20220111
  3. EPCORITAMAB [Suspect]
     Active Substance: EPCORITAMAB
     Dosage: 0.16 MG, PRIMING, SINGLE
     Route: 058
     Dates: start: 20211228, end: 20211228
  4. EPCORITAMAB [Suspect]
     Active Substance: EPCORITAMAB
     Dosage: 0.8 MG, INTERMEDIATE DOSE, SINGLE
     Route: 058
     Dates: start: 20220104, end: 20220104
  5. LENALIDOMIDE [Suspect]
     Active Substance: LENALIDOMIDE
     Indication: Follicular lymphoma stage IV
     Dosage: 20 MG, QD
     Route: 048
     Dates: start: 20211228, end: 20220117
  6. LENALIDOMIDE [Suspect]
     Active Substance: LENALIDOMIDE
     Dosage: 20 MG, QD
     Route: 048
     Dates: start: 20220125, end: 20220204
  7. CHLORAMPHENICOL [Concomitant]
     Active Substance: CHLORAMPHENICOL
  8. FUSIDIC ACID [Concomitant]
     Active Substance: FUSIDIC ACID
  9. TOCILIZUMAB [Concomitant]
     Active Substance: TOCILIZUMAB
  10. ACETAMINOPHEN [Concomitant]
     Active Substance: ACETAMINOPHEN
  11. SOLU-MEDROL [Concomitant]
     Active Substance: METHYLPREDNISOLONE SODIUM SUCCINATE
  12. BISACODYL [Concomitant]
     Active Substance: BISACODYL
  13. ASPIRIN [Concomitant]
     Active Substance: ASPIRIN
  14. PREDNISOLONE [Concomitant]
     Active Substance: PREDNISOLONE

REACTIONS (2)
  - Interstitial lung disease [Recovered/Resolved]
  - Off label use [Unknown]

NARRATIVE: CASE EVENT DATE: 20220202
